FAERS Safety Report 22251157 (Version 1)
Quarter: 2023Q2

REPORT INFORMATION
  Report Type: Spontaneous
  Country: CN (occurrence: CN)
  Receive Date: 20230425
  Receipt Date: 20230425
  Transmission Date: 20230722
  Serious: Yes (Hospitalization)
  Sender: FDA-Public Use
  Company Number: CN-PFIZER INC-PV202300073706

PATIENT
  Age: 3 Year
  Sex: Male
  Weight: 13 kg

DRUGS (2)
  1. METHOTREXATE SODIUM [Suspect]
     Active Substance: METHOTREXATE SODIUM
     Indication: Acute lymphocytic leukaemia
     Dosage: 2.75 G, 1X/DAY
     Dates: start: 20230325, end: 20230325
  2. SODIUM CHLORIDE [Concomitant]
     Active Substance: SODIUM CHLORIDE
     Indication: Vehicle solution use
     Dosage: 50 ML, 1X/DAY
     Dates: start: 20230325, end: 20230325

REACTIONS (9)
  - Gastrointestinal injury [Recovered/Resolved]
  - Gastrointestinal infection [Recovered/Resolved]
  - Pyrexia [Recovered/Resolved]
  - Abdominal discomfort [Recovered/Resolved]
  - Abdominal distension [Recovered/Resolved]
  - Abdominal pain [Recovered/Resolved]
  - Faeces discoloured [Recovering/Resolving]
  - Diarrhoea [Recovering/Resolving]
  - Mucous stools [Recovering/Resolving]

NARRATIVE: CASE EVENT DATE: 20230327
